FAERS Safety Report 12901134 (Version 8)
Quarter: 2017Q2

REPORT INFORMATION
  Report Type: Spontaneous
  Country: US (occurrence: US)
  Receive Date: 20161101
  Receipt Date: 20170522
  Transmission Date: 20170830
  Serious: Yes (Congenital Anomaly, Other)
  Sender: FDA-Public Use
  Company Number: PHEH2016US028070

PATIENT
  Sex: Female

DRUGS (2)
  1. ZOFRAN [Suspect]
     Active Substance: ONDANSETRON HYDROCHLORIDE
     Indication: FOETAL EXPOSURE DURING PREGNANCY
     Route: 064
  2. ONDANSETRON [Suspect]
     Active Substance: ONDANSETRON
     Indication: FOETAL EXPOSURE DURING PREGNANCY
     Dosage: MOTHER^S DOSE: 08 MG, UNK
     Route: 064

REACTIONS (16)
  - Jaundice neonatal [Unknown]
  - Injury [Unknown]
  - Pulmonary artery stenosis congenital [Unknown]
  - Foetal exposure during pregnancy [Unknown]
  - Acute sinusitis [Unknown]
  - Nasal congestion [Unknown]
  - Gastroenteritis [Unknown]
  - Colitis [Unknown]
  - Cardiac murmur [Unknown]
  - Upper respiratory tract infection [Unknown]
  - Speech disorder developmental [Unknown]
  - Atrial septal defect [Unknown]
  - Heart disease congenital [Unknown]
  - Pulmonary valve stenosis congenital [Unknown]
  - Eye discharge [Unknown]
  - Congenital aortic valve incompetence [Unknown]
